FAERS Safety Report 10529784 (Version 1)
Quarter: 2014Q4

REPORT INFORMATION
  Report Type: Spontaneous
  Country: US (occurrence: None)
  Receive Date: 20141020
  Receipt Date: 20141020
  Transmission Date: 20150528
  Serious: Yes (Other)
  Sender: FDA-Public Use
  Company Number: None

PATIENT
  Age: 59 Year
  Sex: Female
  Weight: 150 kg

DRUGS (6)
  1. FLAXSEED [Concomitant]
     Active Substance: FLAX SEED
  2. ROCEPHIN [Suspect]
     Active Substance: CEFTRIAXONE SODIUM
  3. OSTEO BIFLEX 5-LOXIN (CHONDRORTIM/GLUCOSAMIHE) [Concomitant]
     Active Substance: CHONDROITIN SULFATE (BOVINE)\GLUCOSAMINE SULFATE
  4. CIPRO (FOR BLADDER INEFECTION) [Concomitant]
  5. BIOTIN [Concomitant]
     Active Substance: BIOTIN
  6. B-12 SHOT [Concomitant]

REACTIONS (8)
  - Gingival blister [None]
  - Oral mucosal blistering [None]
  - Rash macular [None]
  - Obstructive airways disorder [None]
  - Glossodynia [None]
  - Pruritus [None]
  - Lip blister [None]
  - Oropharyngeal pain [None]

NARRATIVE: CASE EVENT DATE: 20140819
